FAERS Safety Report 8633641 (Version 4)
Quarter: 2013Q1

REPORT INFORMATION
  Report Type: Spontaneous
  Country: US (occurrence: US)
  Receive Date: 20120625
  Receipt Date: 20130107
  Transmission Date: 20140127
  Serious: Yes (Hospitalization, Other)
  Sender: FDA-Public Use
  Company Number: US-ELI_LILLY_AND_COMPANY-US201206005555

PATIENT
  Sex: Female

DRUGS (9)
  1. FORTEO [Suspect]
     Indication: OSTEOPOROSIS
     Dosage: 20 UG, QD
     Dates: start: 20120627
  2. FORTEO [Suspect]
     Dosage: 20 UG, QD
     Dates: start: 20120627
  3. FORTEO [Suspect]
     Dosage: 20 U, QD
     Dates: start: 201208, end: 20120912
  4. FORTEO [Suspect]
     Dosage: 20 U, QD
     Dates: start: 20121006
  5. ADVAIR [Concomitant]
     Dosage: 250/50
  6. AVAPRO [Concomitant]
  7. CRESTOR [Concomitant]
  8. NEXIUM [Concomitant]
  9. SINGULAIR [Concomitant]

REACTIONS (2)
  - Spinal column stenosis [Not Recovered/Not Resolved]
  - Fatigue [Unknown]
